FAERS Safety Report 5944271-9 (Version None)
Quarter: 2008Q4

REPORT INFORMATION
  Report Type: 
  Country: None (occurrence: None)
  Receive Date: 20081104
  Receipt Date: 20081020
  Transmission Date: 20090506
  Serious: Yes (Death, Life-Threatening, Hospitalization)
  Sender: FDA-Public Use
  Company Number: 2008S1004268

PATIENT
  Age: 45 Year
  Sex: Female

DRUGS (23)
  1. AZATHIOPRINE [Suspect]
     Indication: SYSTEMIC LUPUS ERYTHEMATOSUS
     Dosage: UNKNOWN, UNKNOWN
  2. CYCLOPHOSPHAMIDE [Suspect]
     Indication: SYSTEMIC LUPUS ERYTHEMATOSUS
     Dosage: UNKNOWN;ORAL;UNKNOWN
     Route: 048
  3. PREDNISONE [Suspect]
     Indication: SYSTEMIC LUPUS ERYTHEMATOSUS
     Dosage: UNKNOWN, UNKNOWN
     Dates: start: 20020601, end: 20030601
  4. MABTHERA (RITUXIMAB) [Suspect]
     Indication: SYSTEMIC LUPUS ERYTHEMATOSUS
     Dosage: 375 MG/M2;UNKNOWN;INTRAVENOUS;1, 375 MG;UNKNOWN;WEEKLY, UNKNOWN, UNKNOWN
     Route: 042
     Dates: start: 20020801, end: 20050901
  5. MABTHERA (RITUXIMAB) [Suspect]
     Indication: SYSTEMIC LUPUS ERYTHEMATOSUS
     Dosage: 375 MG/M2;UNKNOWN;INTRAVENOUS;1, 375 MG;UNKNOWN;WEEKLY, UNKNOWN, UNKNOWN
     Route: 042
     Dates: start: 20080415, end: 20080515
  6. MABTHERA (RITUXIMAB) [Suspect]
     Indication: SYSTEMIC LUPUS ERYTHEMATOSUS
     Dosage: 375 MG/M2;UNKNOWN;INTRAVENOUS;1, 375 MG;UNKNOWN;WEEKLY, UNKNOWN, UNKNOWN
     Route: 042
     Dates: start: 20051101
  7. CORTICOSTEROIDS (CORTICOSTEROIDS) [Suspect]
     Indication: SYSTEMIC LUPUS ERYTHEMATOSUS
     Dosage: UKNOWN, UNKNOWN
  8. LEVOTHYROXINE SODIUM [Concomitant]
  9. PROBENECID [Concomitant]
  10. NUVELLE (CYCLO-PROGYNOVA) [Concomitant]
  11. LEVOMEPROMAZINE (LEVOMEPROMAZINE) [Concomitant]
  12. IMMUNOGLUBULIN HUMAN NORMAL (IMMUNOGLOBULIN HUMAN NORMAL) [Concomitant]
  13. HYDROXYCHLOROQUINE SULFATE [Concomitant]
  14. FOLIC ACID [Concomitant]
  15. CLARITYN (CROMOGLICATE SODIUM) [Concomitant]
  16. CALCICHEW D3 (LEKOVIT CA) [Concomitant]
  17. AMLODIPINE [Concomitant]
  18. LORATADINE [Concomitant]
  19. METHYLPREDNISOLONE 16MG TAB [Concomitant]
  20. PREDNISONE [Concomitant]
  21. ACYCLOVIR [Concomitant]
  22. RITUXIMAB (RITUXIMAB) [Concomitant]
  23. CYCLOPHOSPHAMIDE [Concomitant]

REACTIONS (17)
  - ATAXIA [None]
  - BALANCE DISORDER [None]
  - BONE MARROW TOXICITY [None]
  - CEREBELLAR SYNDROME [None]
  - CYANOSIS [None]
  - CYSTITIS HAEMORRHAGIC [None]
  - DYSARTHRIA [None]
  - HERPES ZOSTER [None]
  - JC VIRUS INFECTION [None]
  - LYMPHOCYTE COUNT DECREASED [None]
  - NYSTAGMUS [None]
  - PAST-POINTING [None]
  - PNEUMONIA ASPIRATION [None]
  - PROGRESSIVE MULTIFOCAL LEUKOENCEPHALOPATHY [None]
  - RESPIRATORY FAILURE [None]
  - VISION BLURRED [None]
  - WEIGHT DECREASED [None]
